FAERS Safety Report 9140734 (Version 8)
Quarter: 2013Q3

REPORT INFORMATION
  Report Type: Spontaneous
  Country: FR (occurrence: FR)
  Receive Date: 20130305
  Receipt Date: 20130723
  Transmission Date: 20140515
  Serious: Yes (Life-Threatening, Hospitalization)
  Sender: FDA-Public Use
  Company Number: FR-VERTEX PHARMACEUTICALS INC.-2013-003016

PATIENT
  Age: 57 Year
  Sex: Female

DRUGS (6)
  1. INCIVO [Suspect]
     Indication: HEPATITIS C
     Dosage: 2250 MG, QD, TABLET
     Route: 048
     Dates: start: 20130104, end: 20130213
  2. PEGINTERFERON ALFA-2A [Suspect]
     Indication: HEPATITIS C
     Dosage: DOSAGE FORM: SOLUTION FOR INJECTION
     Route: 042
     Dates: start: 20130104, end: 20130213
  3. RIBAVIRIN [Suspect]
     Indication: HEPATITIS C
     Dosage: DOSAGE FORM: TABLET
     Route: 048
     Dates: start: 20130104, end: 20130213
  4. SEROPLEX [Concomitant]
     Indication: ASTHENIA
     Dosage: DOSAGE FORM: UNSPECIFIED
     Route: 048
  5. CLAMOXYL [Concomitant]
     Indication: DENTAL CARE
     Dosage: DOSAGE FORM: UNKNOWN
     Route: 065
     Dates: start: 20130207, end: 20130213
  6. HYDROCORTISONE [Concomitant]
     Indication: PRODUCT USED FOR UNKNOWN INDICATION
     Dosage: DOSAGE FORM: UNSPECIFIED
     Route: 048

REACTIONS (7)
  - Lung infection [Recovered/Resolved]
  - Septic shock [Recovered/Resolved]
  - Cardiac failure [Recovered/Resolved]
  - Hepatic failure [Recovered/Resolved]
  - Renal failure [Recovered/Resolved]
  - Thrombocytopenia [Recovered/Resolved]
  - Anaemia [Recovered/Resolved]
